FAERS Safety Report 16384863 (Version 3)
Quarter: 2020Q1

REPORT INFORMATION
  Report Type: Report from Study
  Country: None (occurrence: US)
  Receive Date: 20190603
  Receipt Date: 20200128
  Transmission Date: 20200409
  Serious: Yes (Hospitalization, Other)
  Sender: FDA-Public Use
  Company Number: US-ABBVIE-19K-163-2801465-00

PATIENT
  Age: 61 Year
  Sex: Female
  Weight: 113.5 kg

DRUGS (1)
  1. HUMIRA [Suspect]
     Active Substance: ADALIMUMAB
     Indication: COLITIS ULCERATIVE
     Route: 058
     Dates: start: 2016

REACTIONS (11)
  - Device issue [Recovered/Resolved]
  - Stress [Unknown]
  - Accidental exposure to product [Recovered/Resolved]
  - Surgery [Unknown]
  - Megacolon [Recovered/Resolved]
  - Device issue [Not Recovered/Not Resolved]
  - Daydreaming [Unknown]
  - Nasopharyngitis [Recovering/Resolving]
  - Accidental exposure to product [Not Recovered/Not Resolved]
  - Device issue [Recovered/Resolved]
  - Colitis ulcerative [Unknown]

NARRATIVE: CASE EVENT DATE: 2018
